FAERS Safety Report 17271545 (Version 1)
Quarter: 2020Q1

REPORT INFORMATION
  Report Type: Spontaneous
  Country: CN (occurrence: CN)
  Receive Date: 20200115
  Receipt Date: 20200115
  Transmission Date: 20200409
  Serious: Yes (Hospitalization, Other)
  Sender: FDA-Public Use
  Company Number: CN-LUPIN PHARMACEUTICALS INC.-2020-00137

PATIENT
  Age: 67 Year
  Sex: Male

DRUGS (1)
  1. MOXIFLOXACIN HYDROCHLORIDE. [Suspect]
     Active Substance: MOXIFLOXACIN HYDROCHLORIDE
     Indication: PNEUMONIA
     Dosage: 400 MILLIGRAM, QD
     Route: 042

REACTIONS (6)
  - Stomatococcal infection [Recovered/Resolved]
  - Respiratory failure [Recovered/Resolved]
  - Lung abscess [Recovered/Resolved]
  - Empyema [Recovered/Resolved]
  - Drug resistance [Unknown]
  - Pneumonia [Recovered/Resolved]
